FAERS Safety Report 14933403 (Version 5)
Quarter: 2018Q4

REPORT INFORMATION
  Report Type: Spontaneous
  Country: SK (occurrence: SK)
  Receive Date: 20180524
  Receipt Date: 20181010
  Transmission Date: 20190204
  Serious: Yes (Death, Other)
  Sender: FDA-Public Use
  Company Number: SK-MYLANLABS-2018M1008350

PATIENT
  Age: 63 Year
  Sex: Male

DRUGS (22)
  1. GEMCITABINE [Suspect]
     Active Substance: GEMCITABINE\GEMCITABINE HYDROCHLORIDE
     Dosage: 3000 MG/M2 DAILY; ON 1.,8.,15. DAY  EVERY 28 DAYS, IN COMBINATION WITH NAB-PACLITAXEL
     Route: 065
     Dates: start: 20151207, end: 201609
  2. GEMCITABINE [Suspect]
     Active Substance: GEMCITABINE\GEMCITABINE HYDROCHLORIDE
     Dosage: 9000 MG/M2, 28D CYCLE
     Route: 065
     Dates: start: 201609, end: 20161017
  3. PACLITAXEL. [Suspect]
     Active Substance: PACLITAXEL
     Indication: PANCREATIC CARCINOMA METASTATIC
     Dosage: ON 1.,8.,15. DAY  EVERY 28 DAYS, IN COMBINATION WITH NAB-PACLITAXEL
     Route: 065
     Dates: start: 20151207, end: 201609
  4. PACLITAXEL. [Suspect]
     Active Substance: PACLITAXEL
     Dosage: ON 1.,8.,15. DAY  EVERY 28 DAYS, IN COMBINATION WITH NAB-PACLITAXEL
     Route: 065
     Dates: start: 201609, end: 20161017
  5. ETAMSYLAT [Concomitant]
     Indication: THROMBOCYTOPENIA
     Dosage: UNK,MAX 3 CAPS PER DAY
     Route: 048
  6. ALLOPURINOL. [Concomitant]
     Active Substance: ALLOPURINOL
     Indication: HYPERURICAEMIA
     Dosage: 100 MG, QD
     Route: 065
     Dates: start: 20160428, end: 20160505
  7. GEMCITABINE [Suspect]
     Active Substance: GEMCITABINE\GEMCITABINE HYDROCHLORIDE
     Dosage: ON 1.,8.,15. DAY  EVERY 28 DAYS, IN COMBINATION WITH NAB-PACLITAXEL
     Route: 065
     Dates: start: 201609, end: 20161017
  8. PACLITAXEL. [Suspect]
     Active Substance: PACLITAXEL
     Dosage: 125 MG/M2, UNK
     Dates: start: 20151207, end: 20161017
  9. ABRAXANE [Suspect]
     Active Substance: PACLITAXEL
     Indication: PANCREATIC CARCINOMA METASTATIC
     Dosage: 125 MG/M2, UNK
     Route: 065
  10. PACLITAXEL. [Suspect]
     Active Substance: PACLITAXEL
     Dosage: 200 MG/M2, CYCLE,ON 1.,8.,15. DAY EVERY 28 DAYS, IN COMBINATION WITH NABPACLITAXEL
     Dates: start: 201609, end: 20161017
  11. CISPLATIN. [Suspect]
     Active Substance: CISPLATIN
     Indication: PANCREATIC CARCINOMA METASTATIC
     Dosage: UNK, ON DAYS 1, 8, 15 WITH A 28DAY CYCLE
     Route: 065
     Dates: start: 20151109, end: 20151123
  12. GEMCITABINE [Suspect]
     Active Substance: GEMCITABINE\GEMCITABINE HYDROCHLORIDE
     Indication: PANCREATIC CARCINOMA METASTATIC
     Dosage: UNK, CYCLE(ON 1.,8.,15. DAY EVERY 28 DAYS, IN COMBINATION WITH CISPLATINA)
     Route: 065
     Dates: start: 20151109, end: 20151123
  13. PACLITAXEL. [Suspect]
     Active Substance: PACLITAXEL
     Dosage: ,(ON 1.,8.,15. DAY EVERY 28 DAYS, IN COMBINATION WITH NABPACLITAXEL0200 MG/M2, CYCLE
     Route: 065
     Dates: start: 20151207, end: 20161017
  14. SEVREDOL [Concomitant]
     Active Substance: MORPHINE
     Indication: ABDOMINAL PAIN
     Dosage: 20 MG, QD
     Route: 048
     Dates: start: 20160622
  15. PALONOSETRON. [Concomitant]
     Active Substance: PALONOSETRON HYDROCHLORIDE
     Indication: PROPHYLAXIS
     Dosage: UNK
     Route: 048
  16. PLATELETS [Concomitant]
     Active Substance: HUMAN PLATELET, ALLOGENIC
     Indication: THROMBOCYTOPENIA
     Dosage: UNK
     Route: 065
  17. SEVREDOL [Concomitant]
     Active Substance: MORPHINE
     Dosage: UNK
     Route: 048
     Dates: start: 201509, end: 201601
  18. GEMCITABINE [Suspect]
     Active Substance: GEMCITABINE\GEMCITABINE HYDROCHLORIDE
     Dosage: 1000 MG/M2, TOTAL,1000 MG/M2 (2.0 GL TOTAL)
     Dates: start: 20151207
  19. GEMCITABINE [Suspect]
     Active Substance: GEMCITABINE\GEMCITABINE HYDROCHLORIDE
     Dosage: 1000 MG/M2, CYCLE(3000 MG/M2 DAILY; ON 1., 8.,15. DAY EVERY 28 DAYS, IN COMBINATION WITH NABPACLITAX
     Route: 065
     Dates: start: 20151207, end: 20161017
  20. GEMCITABINE [Suspect]
     Active Substance: GEMCITABINE\GEMCITABINE HYDROCHLORIDE
     Dosage: 1000 MG/M2, CYCLE
     Route: 065
     Dates: start: 201609, end: 20161017
  21. ABRAXANE [Suspect]
     Active Substance: PACLITAXEL
     Dosage: 600 MG/M2, UNK
     Route: 065
  22. SEVREDOL [Concomitant]
     Active Substance: MORPHINE
     Dosage: 10 MG, QD
     Dates: start: 20160622

REACTIONS (5)
  - Weight decreased [Unknown]
  - Pain [Unknown]
  - Pancreatic carcinoma [Fatal]
  - Malignant neoplasm progression [Fatal]
  - Thrombocytopenia [Recovered/Resolved]

NARRATIVE: CASE EVENT DATE: 20160516
